FAERS Safety Report 5028320-0 (Version None)
Quarter: 2006Q2

REPORT INFORMATION
  Report Type: 
  Country: None (occurrence: None)
  Receive Date: 20060613
  Receipt Date: 20060531
  Transmission Date: 20061013
  Serious: Yes (Other)
  Sender: FDA-Public Use
  Company Number: 007613

PATIENT
  Age: 16 Year
  Sex: Female

DRUGS (1)
  1. CLARAVIS [Suspect]
     Dosage: 20 MG, BID, ORAL
     Route: 048
     Dates: start: 20050901, end: 20060526

REACTIONS (2)
  - DRUG EXPOSURE BEFORE PREGNANCY [None]
  - UNINTENDED PREGNANCY [None]
